FAERS Safety Report 9835116 (Version 2)
Quarter: 2014Q2

REPORT INFORMATION
  Report Type: Spontaneous
  Country: US (occurrence: US)
  Receive Date: 20140122
  Receipt Date: 20140424
  Transmission Date: 20141212
  Serious: No
  Sender: FDA-Public Use
  Company Number: US-BRISTOL-MYERS SQUIBB COMPANY-19797570

PATIENT
  Age: 75 Year
  Sex: Male
  Weight: 92.51 kg

DRUGS (9)
  1. ELIQUIS [Suspect]
     Indication: ATRIAL FIBRILLATION
     Dates: start: 201310
  2. WARFARIN [Concomitant]
  3. CARDIZEM CD [Concomitant]
  4. ATENOLOL [Concomitant]
  5. SIMVASTATIN [Concomitant]
  6. LISINOPRIL [Concomitant]
  7. METFORMIN [Concomitant]
     Indication: DIABETES MELLITUS
     Dates: start: 2013
  8. KLONOPIN [Concomitant]
  9. LEVOTHYROXINE [Concomitant]

REACTIONS (6)
  - Wound haemorrhage [Unknown]
  - Helicobacter gastritis [Unknown]
  - Cough [Unknown]
  - Oropharyngeal pain [Unknown]
  - Drug dose omission [Unknown]
  - Malaise [Unknown]
